FAERS Safety Report 16407369 (Version 2)
Quarter: 2019Q2

REPORT INFORMATION
  Report Type: Spontaneous
  Country: US (occurrence: US)
  Receive Date: 20190608
  Receipt Date: 20190620
  Transmission Date: 20190711
  Serious: No
  Sender: FDA-Public Use
  Company Number: US-AMGEN-USASP2019088282

PATIENT
  Age: 59 Year
  Sex: Female

DRUGS (1)
  1. PROLIA [Suspect]
     Active Substance: DENOSUMAB
     Indication: OSTEOPOROSIS POSTMENOPAUSAL
     Dosage: 60 MILLIGRAM, Q6MO
     Route: 065
     Dates: start: 2017

REACTIONS (14)
  - Heart rate irregular [Unknown]
  - Contusion [Unknown]
  - Back pain [Unknown]
  - Malaise [Unknown]
  - Pain in extremity [Unknown]
  - Muscle spasms [Unknown]
  - Arthralgia [Unknown]
  - Bone pain [Not Recovered/Not Resolved]
  - Groin pain [Unknown]
  - Blood pressure increased [Unknown]
  - Myalgia [Unknown]
  - Pain [Unknown]
  - Blood triglycerides increased [Unknown]
  - Fatigue [Unknown]

NARRATIVE: CASE EVENT DATE: 20181101
